FAERS Safety Report 18705761 (Version 1)
Quarter: 2021Q1

REPORT INFORMATION
  Report Type: Spontaneous
  Country: US (occurrence: US)
  Receive Date: 20210105
  Receipt Date: 20210105
  Transmission Date: 20210419
  Serious: Yes (Hospitalization)
  Sender: FDA-Public Use
  Company Number: None

PATIENT
  Age: 89 Year
  Sex: Male

DRUGS (8)
  1. METHOCARBAM [Concomitant]
     Active Substance: METHOCARBAMOL
  2. SILDENAFIL. [Suspect]
     Active Substance: SILDENAFIL
     Indication: HYPERTENSION
     Route: 048
     Dates: start: 20200429
  3. HYDROCO/APAP [Concomitant]
     Active Substance: ACETAMINOPHEN\HYDROCODONE
  4. FUROSEMIDE. [Concomitant]
     Active Substance: FUROSEMIDE
  5. POT CHLORIDE ER [Concomitant]
  6. SIMVASTATIN. [Concomitant]
     Active Substance: SIMVASTATIN
  7. ALLOPURINOL. [Concomitant]
     Active Substance: ALLOPURINOL
  8. PREDNISONE. [Concomitant]
     Active Substance: PREDNISONE

REACTIONS (1)
  - Cardiac failure congestive [None]

NARRATIVE: CASE EVENT DATE: 20201111
